FAERS Safety Report 10982799 (Version 1)
Quarter: 2015Q2

REPORT INFORMATION
  Report Type: Spontaneous
  Country: US (occurrence: None)
  Receive Date: 20150402
  Receipt Date: 20150402
  Transmission Date: 20150821
  Serious: Yes (Other)
  Sender: FDA-Public Use
  Company Number: None

PATIENT
  Age: 30 Year
  Sex: Female
  Weight: 107.05 kg

DRUGS (1)
  1. CONTRAVE [Suspect]
     Active Substance: BUPROPION HYDROCHLORIDE\NALTREXONE HYDROCHLORIDE
     Indication: WEIGHT CONTROL
     Dosage: TAKEN BY MOUTH
     Dates: start: 20150329, end: 20150331

REACTIONS (5)
  - Throat tightness [None]
  - Chest pain [None]
  - Paraesthesia [None]
  - Rash [None]
  - Chest discomfort [None]

NARRATIVE: CASE EVENT DATE: 20150331
